FAERS Safety Report 25463773 (Version 1)
Quarter: 2025Q2

REPORT INFORMATION
  Report Type: Spontaneous
  Country: ES (occurrence: ES)
  Receive Date: 20250621
  Receipt Date: 20250621
  Transmission Date: 20250717
  Serious: Yes (Life-Threatening, Other)
  Sender: AUROBINDO
  Company Number: ES-ASTRAZENECA-202410GLO021995ES

PATIENT
  Age: 40 Year
  Sex: Female
  Weight: 53 kg

DRUGS (12)
  1. CARBOPLATIN [Suspect]
     Active Substance: CARBOPLATIN
     Indication: Triple negative breast cancer
     Route: 042
     Dates: start: 20240521
  2. DOXORUBICIN [Suspect]
     Active Substance: DOXORUBICIN
     Indication: Triple negative breast cancer
     Route: 042
     Dates: start: 20240820, end: 20241008
  3. PACLITAXEL [Suspect]
     Active Substance: PACLITAXEL
     Indication: Triple negative breast cancer
     Route: 042
     Dates: start: 20240521
  4. CYCLOPHOSPHAMIDE [Suspect]
     Active Substance: CYCLOPHOSPHAMIDE
     Indication: Triple negative breast cancer
     Route: 042
     Dates: start: 20240820, end: 20240820
  5. CYCLOPHOSPHAMIDE [Suspect]
     Active Substance: CYCLOPHOSPHAMIDE
     Route: 042
     Dates: start: 20240917, end: 20241008
  6. PEMBROLIZUMAB [Suspect]
     Active Substance: PEMBROLIZUMAB
     Indication: Triple negative breast cancer
     Route: 065
     Dates: start: 20240521, end: 20241008
  7. EUTHYROX [Concomitant]
     Active Substance: LEVOTHYROXINE SODIUM
     Indication: Hypothyroidism
     Route: 048
     Dates: start: 20240910
  8. EUTHYROX [Concomitant]
     Active Substance: LEVOTHYROXINE SODIUM
     Dosage: 75 MILLIGRAM, ONCE A DAY
     Route: 048
     Dates: start: 20240910
  9. EUTHYROX [Concomitant]
     Active Substance: LEVOTHYROXINE SODIUM
     Route: 048
     Dates: start: 20240820, end: 20240909
  10. AMOXICILLIN [Concomitant]
     Active Substance: AMOXICILLIN
     Indication: Viral infection
     Dosage: 2625 MILLIGRAM, ONCE A DAY (875 MILLIGRAM, TID)
     Route: 048
     Dates: start: 20240613, end: 20240625
  11. PREDNISONE [Concomitant]
     Active Substance: PREDNISONE
     Indication: Myopericarditis
     Route: 048
     Dates: start: 20241023
  12. PREDNISONE [Concomitant]
     Active Substance: PREDNISONE
     Dosage: 1 MILLIGRAM/KILOGRAM, ONCE A DAY (1 MG/KG, QD)
     Route: 048
     Dates: start: 20241024

REACTIONS (1)
  - Myopericarditis [Not Recovered/Not Resolved]

NARRATIVE: CASE EVENT DATE: 20241008
